FAERS Safety Report 19278685 (Version 1)
Quarter: 2021Q2

REPORT INFORMATION
  Report Type: Spontaneous
  Country: ES (occurrence: ES)
  Receive Date: 20210520
  Receipt Date: 20210520
  Transmission Date: 20210717
  Serious: Yes (Other)
  Sender: FDA-Public Use
  Company Number: ES-AMGEN-ESPSP2021073753

PATIENT
  Age: 46 Year
  Sex: Female
  Weight: 74 kg

DRUGS (1)
  1. AMGEVITA [Suspect]
     Active Substance: ADALIMUMAB
     Indication: AXIAL SPONDYLOARTHRITIS
     Dosage: SCHEDULED EVERY 2 WEEKS
     Route: 058
     Dates: start: 20210412, end: 20210412

REACTIONS (5)
  - Pruritus [Recovered/Resolved]
  - Rash erythematous [Recovered/Resolved]
  - Tongue oedema [Recovered/Resolved]
  - Palatal oedema [Recovered/Resolved]
  - Administration site erythema [Recovered/Resolved]

NARRATIVE: CASE EVENT DATE: 20210424
